FAERS Safety Report 21359200 (Version 1)
Quarter: 2022Q3

REPORT INFORMATION
  Report Type: Spontaneous
  Country: US (occurrence: None)
  Receive Date: 20220920
  Receipt Date: 20220920
  Transmission Date: 20221026
  Serious: Yes (Other)
  Sender: FDA-Public Use
  Company Number: None

PATIENT
  Age: 17 Year
  Sex: Female
  Weight: 85.5 kg

DRUGS (6)
  1. EPIDUO FORTE [Suspect]
     Active Substance: ADAPALENE\BENZOYL PEROXIDE
     Indication: Acne
     Dosage: OTHER QUANTITY : 1 DROP(S);?FREQUENCY : DAILY;?
     Route: 061
  2. sertraline 75mg [Concomitant]
  3. VYVANSE [Concomitant]
     Active Substance: LISDEXAMFETAMINE DIMESYLATE
  4. zyrtec 1 tablet [Concomitant]
  5. multivitamin 2 gummies [Concomitant]
  6. PROBIOTICS NOS [Concomitant]
     Active Substance: PROBIOTICS NOS

REACTIONS (6)
  - Skin irritation [None]
  - Erythema [None]
  - Sunburn [None]
  - Pruritus [None]
  - Swelling [None]
  - Swelling of eyelid [None]

NARRATIVE: CASE EVENT DATE: 20220918
